FAERS Safety Report 8919523 (Version 1)
Quarter: 2012Q4

REPORT INFORMATION
  Report Type: Report from Study
  Country: IT (occurrence: IT)
  Receive Date: 20121121
  Receipt Date: 20121121
  Transmission Date: 20130627
  Serious: Yes (Hospitalization)
  Sender: FDA-Public Use
  Company Number: IT-UCBSA-071226

PATIENT

DRUGS (1)
  1. LEVETIRACETAM [Suspect]
     Indication: CONVULSION
     Dosage: 250 MG TWICE DAILY FOR 2 WEEKS FOLLOWED BY 500 MG TWICE DAILY

REACTIONS (1)
  - Syncope [Unknown]
